FAERS Safety Report 7486143-7 (Version None)
Quarter: 2011Q2

REPORT INFORMATION
  Report Type: 
  Country: None (occurrence: None)
  Receive Date: 20110517
  Receipt Date: 20110505
  Transmission Date: 20111010
  Serious: Yes (Hospitalization, Other)
  Sender: FDA-Public Use
  Company Number: BR-UCBSA-030669

PATIENT
  Sex: Female
  Weight: 61 kg

DRUGS (6)
  1. ESTRADIOL [Concomitant]
     Indication: CONTRACEPTION
     Route: 048
     Dates: start: 20060101
  2. CERTOLIZUMAB PEGOL [Suspect]
     Indication: CROHN'S DISEASE
     Route: 058
     Dates: start: 20090706, end: 20090801
  3. MESALAMINE [Concomitant]
     Indication: CROHN'S DISEASE
     Route: 048
     Dates: start: 20060713
  4. NORETHISTERONE [Concomitant]
     Indication: CONTRACEPTION
     Route: 048
     Dates: start: 20060101
  5. IMIPRAMINE [Concomitant]
     Indication: INSOMNIA
     Route: 048
     Dates: start: 20080130
  6. CERTOLIZUMAB PEGOL [Suspect]
     Route: 058
     Dates: start: 20090801

REACTIONS (1)
  - APPENDICITIS [None]
